FAERS Safety Report 12887626 (Version 11)
Quarter: 2017Q2

REPORT INFORMATION
  Report Type: Report from Study
  Country: US (occurrence: US)
  Receive Date: 20161026
  Receipt Date: 20170410
  Transmission Date: 20170830
  Serious: Yes (Hospitalization, Other)
  Sender: FDA-Public Use
  Company Number: US-009507513-1610USA005027

PATIENT
  Age: 76 Year
  Sex: Male

DRUGS (8)
  1. ASPIRIN. [Concomitant]
     Active Substance: ASPIRIN
     Dosage: UNK
     Route: 048
  2. FOLIC ACID. [Concomitant]
     Active Substance: FOLIC ACID
     Dosage: UNK
  3. CHOLECALCIFEROL [Concomitant]
     Active Substance: CHOLECALCIFEROL
     Dosage: UNK
  4. PREDNISONE. [Concomitant]
     Active Substance: PREDNISONE
     Dosage: UNK
     Route: 048
  5. MORPHINE SULFATE. [Concomitant]
     Active Substance: MORPHINE SULFATE
     Indication: COUGH
     Dosage: UNK
  6. LIPITOR [Concomitant]
     Active Substance: ATORVASTATIN CALCIUM
     Dosage: UNK
  7. PEMBROLIZUMAB. [Suspect]
     Active Substance: PEMBROLIZUMAB
     Indication: NON-SMALL CELL LUNG CANCER
     Dosage: UNK, EVERY 3 WEEKS
     Route: 042
     Dates: start: 20160922, end: 2017
  8. SIMETHICONE (DIMETHICONE) [Concomitant]
     Active Substance: DIMETHICONE
     Dosage: UNK

REACTIONS (18)
  - Dysphagia [Recovered/Resolved]
  - Lip oedema [Recovered/Resolved]
  - Swelling face [Recovered/Resolved]
  - Malignant neoplasm progression [Unknown]
  - Rhinorrhoea [Unknown]
  - Productive cough [Unknown]
  - Oral pain [Unknown]
  - Weight decreased [Unknown]
  - Epiglottitis [Recovering/Resolving]
  - Epiglottic oedema [Unknown]
  - Dyspnoea [Not Recovered/Not Resolved]
  - Pneumonia viral [Unknown]
  - Staphylococcal infection [Recovering/Resolving]
  - Anxiety [Unknown]
  - Epistaxis [Unknown]
  - Adverse event [Recovering/Resolving]
  - Pneumonia bacterial [Unknown]
  - Wheezing [Not Recovered/Not Resolved]

NARRATIVE: CASE EVENT DATE: 2016
